FAERS Safety Report 12468862 (Version 2)
Quarter: 2025Q3

REPORT INFORMATION
  Report Type: Spontaneous
  Country: EU (occurrence: EU)
  Receive Date: 20160615
  Receipt Date: 20250814
  Transmission Date: 20251020
  Serious: Yes (Hospitalization)
  Sender: MYLAN
  Company Number: EU-MYLANLABS-2016M1024613

PATIENT
  Age: 59 Year
  Sex: Male

DRUGS (32)
  1. MYCOPHENOLATE MOFETIL [Suspect]
     Active Substance: MYCOPHENOLATE MOFETIL
     Indication: Immunosuppressant drug therapy
  2. MYCOPHENOLATE MOFETIL [Suspect]
     Active Substance: MYCOPHENOLATE MOFETIL
     Route: 065
  3. MYCOPHENOLATE MOFETIL [Suspect]
     Active Substance: MYCOPHENOLATE MOFETIL
     Route: 065
  4. MYCOPHENOLATE MOFETIL [Suspect]
     Active Substance: MYCOPHENOLATE MOFETIL
  5. PREDNISONE [Suspect]
     Active Substance: PREDNISONE
     Indication: Immunosuppressant drug therapy
  6. PREDNISONE [Suspect]
     Active Substance: PREDNISONE
     Route: 065
  7. PREDNISONE [Suspect]
     Active Substance: PREDNISONE
     Route: 065
  8. PREDNISONE [Suspect]
     Active Substance: PREDNISONE
  9. ITRACONAZOLE [Suspect]
     Active Substance: ITRACONAZOLE
     Indication: Phaeohyphomycosis
  10. ITRACONAZOLE [Suspect]
     Active Substance: ITRACONAZOLE
  11. ITRACONAZOLE [Suspect]
     Active Substance: ITRACONAZOLE
     Route: 065
  12. ITRACONAZOLE [Suspect]
     Active Substance: ITRACONAZOLE
     Route: 065
  13. ITRACONAZOLE [Suspect]
     Active Substance: ITRACONAZOLE
  14. ITRACONAZOLE [Suspect]
     Active Substance: ITRACONAZOLE
  15. ITRACONAZOLE [Suspect]
     Active Substance: ITRACONAZOLE
     Route: 065
  16. ITRACONAZOLE [Suspect]
     Active Substance: ITRACONAZOLE
     Route: 065
  17. TACROLIMUS [Interacting]
     Active Substance: TACROLIMUS
     Indication: Immunosuppressant drug therapy
     Route: 065
  18. TACROLIMUS [Interacting]
     Active Substance: TACROLIMUS
  19. TACROLIMUS [Interacting]
     Active Substance: TACROLIMUS
  20. TACROLIMUS [Interacting]
     Active Substance: TACROLIMUS
     Route: 065
  21. TACROLIMUS [Interacting]
     Active Substance: TACROLIMUS
     Route: 065
  22. TACROLIMUS [Interacting]
     Active Substance: TACROLIMUS
  23. TACROLIMUS [Interacting]
     Active Substance: TACROLIMUS
  24. TACROLIMUS [Interacting]
     Active Substance: TACROLIMUS
     Route: 065
  25. POSACONAZOLE [Interacting]
     Active Substance: POSACONAZOLE
     Indication: Phaeohyphomycosis
  26. POSACONAZOLE [Interacting]
     Active Substance: POSACONAZOLE
     Route: 065
  27. POSACONAZOLE [Interacting]
     Active Substance: POSACONAZOLE
     Route: 065
  28. POSACONAZOLE [Interacting]
     Active Substance: POSACONAZOLE
  29. AMOXICILLIN\CLAVULANIC ACID [Concomitant]
     Active Substance: AMOXICILLIN\CLAVULANIC ACID
     Indication: Phaeohyphomycosis
  30. AMOXICILLIN\CLAVULANIC ACID [Concomitant]
     Active Substance: AMOXICILLIN\CLAVULANIC ACID
     Route: 065
  31. AMOXICILLIN\CLAVULANIC ACID [Concomitant]
     Active Substance: AMOXICILLIN\CLAVULANIC ACID
     Route: 065
  32. AMOXICILLIN\CLAVULANIC ACID [Concomitant]
     Active Substance: AMOXICILLIN\CLAVULANIC ACID

REACTIONS (3)
  - Labelled drug-drug interaction medication error [Recovered/Resolved]
  - Immunosuppressant drug level increased [Recovered/Resolved]
  - Phaeohyphomycosis [Recovering/Resolving]
